FAERS Safety Report 6046049-7 (Version None)
Quarter: 2009Q1

REPORT INFORMATION
  Report Type: 
  Country: None (occurrence: None)
  Receive Date: 20090116
  Receipt Date: 20090109
  Transmission Date: 20090719
  Serious: Yes (Other)
  Sender: FDA-Public Use
  Company Number: CHPA2009US00560

PATIENT
  Age: 32 Year
  Sex: Female

DRUGS (3)
  1. VOLTAREN [Suspect]
     Indication: ARTHRALGIA
     Dosage: SMALL AMOUNT APPLIED WITH TIP OF FINGER, TOPICAL
     Route: 061
     Dates: start: 20080901, end: 20080901
  2. VOLTAREN [Suspect]
     Indication: MYOSITIS
     Dosage: SMALL AMOUNT APPLIED WITH TIP OF FINGER, TOPICAL
     Route: 061
     Dates: start: 20080901, end: 20080901
  3. TOPAMAX [Concomitant]

REACTIONS (9)
  - APPLICATION SITE DISCOLOURATION [None]
  - APPLICATION SITE DRYNESS [None]
  - APPLICATION SITE EROSION [None]
  - APPLICATION SITE ERYTHEMA [None]
  - APPLICATION SITE IRRITATION [None]
  - APPLICATION SITE SCAR [None]
  - DRUG INEFFECTIVE [None]
  - IMPAIRED HEALING [None]
  - WRONG TECHNIQUE IN DRUG USAGE PROCESS [None]
